FAERS Safety Report 5750731-6 (Version None)
Quarter: 2008Q2

REPORT INFORMATION
  Report Type: 
  Country: None (occurrence: None)
  Receive Date: 20080523
  Receipt Date: 20080523
  Transmission Date: 20081010
  Serious: Yes (Disabling)
  Sender: FDA-Public Use
  Company Number: None

PATIENT
  Sex: Male
  Weight: 73.9363 kg

DRUGS (1)
  1. LUNESTA [Suspect]
     Dosage: 3 MG DAILY ORAL
     Route: 048
     Dates: start: 20071014, end: 20080420

REACTIONS (2)
  - BALANCE DISORDER [None]
  - DIZZINESS [None]
